FAERS Safety Report 18526185 (Version 1)
Quarter: 2020Q4

REPORT INFORMATION
  Report Type: Spontaneous
  Country: SE (occurrence: SE)
  Receive Date: 20201120
  Receipt Date: 20201120
  Transmission Date: 20210114
  Serious: Yes (Hospitalization)
  Sender: FDA-Public Use
  Company Number: SE-TEVA-2020-SE-1850075

PATIENT
  Age: 78 Year
  Sex: Male

DRUGS (8)
  1. ATENOLOL. [Concomitant]
     Active Substance: ATENOLOL
  2. CREON [Concomitant]
     Active Substance: PANCRELIPASE AMYLASE\PANCRELIPASE LIPASE\PANCRELIPASE PROTEASE
  3. OXALIPLATIN. [Concomitant]
     Active Substance: OXALIPLATIN
  4. FLUOROURACIL. [Suspect]
     Active Substance: FLUOROURACIL
     Indication: PANCREATIC CARCINOMA
     Dosage: THE SECOND COURSE OF FOLFIRINOX
     Route: 042
     Dates: start: 20201005, end: 20201007
  5. FELODIPINE. [Concomitant]
     Active Substance: FELODIPINE
  6. ALFUZOSIN [Concomitant]
     Active Substance: ALFUZOSIN
  7. IRINOTECAN [Concomitant]
     Active Substance: IRINOTECAN
  8. FOLSYRA [Concomitant]

REACTIONS (3)
  - Chest pain [Recovered/Resolved]
  - Myocardial ischaemia [Recovered/Resolved]
  - Electrocardiogram abnormal [Recovered/Resolved]

NARRATIVE: CASE EVENT DATE: 20201007
